FAERS Safety Report 10261650 (Version 2)
Quarter: 2014Q3

REPORT INFORMATION
  Report Type: Spontaneous
  Country: IR (occurrence: IR)
  Receive Date: 20140626
  Receipt Date: 20140715
  Transmission Date: 20150326
  Serious: No
  Sender: FDA-Public Use
  Company Number: IR-NOVOPROD-414242

PATIENT
  Age: 35 Year
  Sex: Male

DRUGS (8)
  1. NITROCONTIN [Concomitant]
     Dosage: 2 TAB, QD
     Route: 065
  2. NOVORAPID [Suspect]
     Active Substance: INSULIN ASPART
  3. METORAL [Concomitant]
     Dosage: 0.5 TAB, BID
     Route: 065
  4. ENALAPRIL [Concomitant]
     Active Substance: ENALAPRIL
     Dosage: 2 TAB, QD
     Route: 065
  5. ATORVASTATIN [Concomitant]
     Active Substance: ATORVASTATIN
     Dosage: 1 TAB, QD
     Route: 065
  6. NOVOMIX 30 FLEXPEN [Suspect]
     Active Substance: INSULIN ASPART
     Dosage: 45 IU, QD (25 IU IN THE MORNING AND 20 IU AT NIGHT)
     Route: 058
     Dates: end: 20140509
  7. ASPRIN [Concomitant]
     Active Substance: ASPIRIN
     Dosage: UNK
     Route: 065
  8. NOVOMIX 30 FLEXPEN [Suspect]
     Active Substance: INSULIN ASPART
     Indication: TYPE 1 DIABETES MELLITUS
     Dosage: 12 IU, QD (6 IU IN THE MORNING AND AT NIGHT)
     Route: 058
     Dates: start: 20140408

REACTIONS (1)
  - Diabetes mellitus inadequate control [Unknown]
